FAERS Safety Report 14026816 (Version 2)
Quarter: 2017Q4

REPORT INFORMATION
  Report Type: Report from Study
  Country: AU (occurrence: AU)
  Receive Date: 20170929
  Receipt Date: 20171004
  Transmission Date: 20180321
  Serious: Yes (Death, Other)
  Sender: FDA-Public Use
  Company Number: AU-AMGEN-AUSSL2017147278

PATIENT
  Age: 62 Year
  Sex: Female

DRUGS (1)
  1. KYPROLIS [Suspect]
     Active Substance: CARFILZOMIB
     Indication: PLASMA CELL MYELOMA
     Dosage: 98 MG, THERAPEUTIC DOSE
     Route: 065

REACTIONS (2)
  - Plasma cell myeloma [Fatal]
  - Refusal of treatment by patient [Unknown]
